FAERS Safety Report 7821900-6 (Version None)
Quarter: 2011Q4

REPORT INFORMATION
  Report Type: 
  Country: None (occurrence: None)
  Receive Date: 20111018
  Receipt Date: 20101201
  Transmission Date: 20120403
  Serious: No
  Sender: FDA-Public Use
  Company Number: US-ASTRAZENECA-2010SE42979

PATIENT
  Sex: Male
  Weight: 79.4 kg

DRUGS (2)
  1. SYMBICORT [Suspect]
     Indication: ASTHMA
     Dosage: 640 MCG TWO TIMES A DAILY
     Route: 055
  2. SYMBICORT [Suspect]
     Dosage: 160-4.5 MCG, 2 PUFFS TWO TIMES IN A DAY
     Route: 055
     Dates: start: 20090901

REACTIONS (2)
  - MUSCLE SPASMS [None]
  - DRUG DOSE OMISSION [None]
